FAERS Safety Report 13986064 (Version 1)
Quarter: 2017Q3

REPORT INFORMATION
  Report Type: Spontaneous
  Country: CA (occurrence: CA)
  Receive Date: 20170919
  Receipt Date: 20170919
  Transmission Date: 20171128
  Serious: Yes (Other)
  Sender: FDA-Public Use
  Company Number: CA-DRREDDYS-USA/CAN/17/0093394

PATIENT
  Sex: Female

DRUGS (1)
  1. ZOLEDRONIC ACID [Suspect]
     Active Substance: ZOLEDRONIC ACID
     Indication: PRODUCT USED FOR UNKNOWN INDICATION
     Route: 065

REACTIONS (6)
  - Pyrexia [Recovering/Resolving]
  - Chest pain [Recovering/Resolving]
  - Urinary incontinence [Recovered/Resolved]
  - Aphasia [Recovering/Resolving]
  - Delirium [Recovering/Resolving]
  - Back pain [Recovering/Resolving]
